FAERS Safety Report 5531292-3 (Version None)
Quarter: 2007Q4

REPORT INFORMATION
  Report Type: 
  Country: None (occurrence: None)
  Receive Date: 20071128
  Receipt Date: 20071126
  Transmission Date: 20080405
  Serious: Yes (Hospitalization)
  Sender: FDA-Public Use
  Company Number: 100#08#2007-04816

PATIENT
  Age: 62 Year
  Sex: Female

DRUGS (6)
  1. DESMOPRESSIN                                                       (DE [Suspect]
     Indication: BLOOD SODIUM INCREASED
  2. DESMOPRESSIN                                                       (DE [Suspect]
     Indication: FLUID INTAKE REDUCED
  3. DEKORT                         (DEXAMETHASONE) [Concomitant]
  4. LEVOTIRON                              (LEVOTHYROXINE SODIUM) (LEVOTHT [Concomitant]
  5. KAPRIL [Concomitant]
  6. INSULIN BUFFERED-DEXTROSE               (SOLUTION)  (INSULIN, DEXTROSE [Concomitant]
     Dosage: 10 U OF REG TO EVERY 100ML 5% DEXTROSE
     Route: 042

REACTIONS (4)
  - GRAND MAL CONVULSION [None]
  - HYPERTENSION [None]
  - HYPERTENSIVE ENCEPHALOPATHY [None]
  - POST PROCEDURAL COMPLICATION [None]
